FAERS Safety Report 25124880 (Version 2)
Quarter: 2025Q2

REPORT INFORMATION
  Report Type: Report from Study
  Country: PR (occurrence: PR)
  Receive Date: 20250326
  Receipt Date: 20250408
  Transmission Date: 20250717
  Serious: Yes (Hospitalization)
  Sender: EISAI
  Company Number: PR-Eisai-EC-2025-186197

PATIENT
  Age: 74 Year
  Sex: Male
  Weight: 88 kg

DRUGS (2)
  1. LENVIMA [Suspect]
     Active Substance: LENVATINIB
     Indication: Hepatocellular carcinoma
     Dates: start: 20250306, end: 202503
  2. LENVIMA [Suspect]
     Active Substance: LENVATINIB
     Dates: start: 20250331

REACTIONS (7)
  - Spleen disorder [Recovering/Resolving]
  - Hepatic neoplasm [Recovering/Resolving]
  - Haematochezia [Not Recovered/Not Resolved]
  - Haematemesis [Recovering/Resolving]
  - Diarrhoea [Recovering/Resolving]
  - Amnesia [Recovering/Resolving]
  - Hypotension [Recovering/Resolving]

NARRATIVE: CASE EVENT DATE: 20250301
